FAERS Safety Report 7175317-0 (Version None)
Quarter: 2010Q4

REPORT INFORMATION
  Report Type: 
  Country: None (occurrence: None)
  Receive Date: 20101220
  Receipt Date: 20100306
  Transmission Date: 20110411
  Serious: No
  Sender: FDA-Public Use
  Company Number: US-AMGEN-TCS397862

PATIENT

DRUGS (2)
  1. ENBREL [Suspect]
     Indication: RHEUMATOID ARTHRITIS
     Dosage: 25 MG, QWK
     Route: 058
  2. ENBREL [Suspect]
     Indication: PSORIASIS

REACTIONS (5)
  - HEADACHE [None]
  - MUSCULOSKELETAL STIFFNESS [None]
  - PAIN [None]
  - PARANASAL SINUS HYPERSECRETION [None]
  - SINUS HEADACHE [None]
